FAERS Safety Report 6154294-5 (Version None)
Quarter: 2009Q2

REPORT INFORMATION
  Report Type: 
  Country: None (occurrence: None)
  Receive Date: 20090414
  Receipt Date: 20090403
  Transmission Date: 20091009
  Serious: Yes (Hospitalization)
  Sender: FDA-Public Use
  Company Number: JP-BRISTOL-MYERS SQUIBB COMPANY-14582308

PATIENT
  Age: 65 Year
  Sex: Female

DRUGS (5)
  1. ABILIFY [Suspect]
     Indication: SCHIZOPHRENIA
     Dosage: INITIATED AT 6MG/D, THEN INCREASED TO 12MG/D AND 24MG/D DOSE REDUCED TO 12MG/D.
     Route: 048
  2. RISPERIDONE [Concomitant]
     Dosage: INITIAL DOSE: 4MG/DAY,  THEN REDUCED TO 3MG/D AND 2MG/D
  3. BIPERIDEN HYDROCHLORIDE TAB [Concomitant]
  4. QUETIAPINE FUMARATE [Concomitant]
     Indication: INSOMNIA
     Dosage: DOSE REDUCED TO 25MG/D. FORMULATION TABLET.
  5. BLONANSERIN [Concomitant]

REACTIONS (2)
  - INSOMNIA [None]
  - SCHIZOPHRENIA [None]
